FAERS Safety Report 5277078-9 (Version None)
Quarter: 2007Q1

REPORT INFORMATION
  Report Type: 
  Country: None (occurrence: None)
  Receive Date: 20070327
  Receipt Date: 20070320
  Transmission Date: 20070707
  Serious: Yes (Death)
  Sender: FDA-Public Use
  Company Number: US-GLAXOSMITHKLINE-A0632852A

PATIENT
  Age: 39 Year
  Sex: Female

DRUGS (8)
  1. WELLBUTRIN [Suspect]
     Indication: DEPRESSION
     Route: 048
  2. ADVAIR DISKUS 100/50 [Suspect]
     Indication: ASTHMA
     Route: 055
  3. INHALER [Concomitant]
  4. SONATA [Concomitant]
  5. ANTIBIOTICS [Concomitant]
  6. ANTIHISTAMINES [Concomitant]
  7. PROTONIX [Concomitant]
  8. XANAX [Concomitant]

REACTIONS (5)
  - CONVULSION [None]
  - DEATH [None]
  - FEELING DRUNK [None]
  - HOMICIDE [None]
  - INTENTIONAL OVERDOSE [None]
